FAERS Safety Report 8030516-0 (Version None)
Quarter: 2012Q1

REPORT INFORMATION
  Report Type: 
  Country: None (occurrence: None)
  Receive Date: 20120109
  Receipt Date: 20120105
  Transmission Date: 20120608
  Serious: Yes (Other)
  Sender: FDA-Public Use
  Company Number: GB-ROCHE-1002391

PATIENT
  Sex: Female

DRUGS (11)
  1. TERBUTALINE [Concomitant]
  2. VENLAFAXINE [Concomitant]
  3. LUCENTIS [Suspect]
     Indication: AGE-RELATED MACULAR DEGENERATION
     Route: 050
     Dates: start: 20100401
  4. CALCIUM CARBONATE [Concomitant]
  5. IPRATROPIUM BROMIDE [Concomitant]
  6. DIGOXIN [Concomitant]
  7. FLUTICASONE PROPIONATE/SALMETEROL [Concomitant]
  8. WARFARIN SODIUM [Concomitant]
  9. LANSOPRAZOLE [Concomitant]
  10. ALBUTEROL SULFATE AUTOHALER [Concomitant]
  11. SPIRONOLACTONE [Concomitant]

REACTIONS (1)
  - CEREBROVASCULAR ACCIDENT [None]
